FAERS Safety Report 15655068 (Version 3)
Quarter: 2019Q1

REPORT INFORMATION
  Report Type: Report from Study
  Country: TW (occurrence: TW)
  Receive Date: 20181126
  Receipt Date: 20190131
  Transmission Date: 20190417
  Serious: Yes (Hospitalization)
  Sender: FDA-Public Use
  Company Number: TW-ROCHE-2217753

PATIENT
  Age: 42 Year
  Sex: Male
  Weight: 73 kg

DRUGS (11)
  1. ULSAFE [Concomitant]
     Route: 048
     Dates: start: 20181119
  2. ATEZOLIZUMAB. [Suspect]
     Active Substance: ATEZOLIZUMAB
     Indication: NON-SMALL CELL LUNG CANCER
     Dosage: ATEZOLIZUMAB WILL BE ADMINISTERED AS INTRAVENOUS (IV) INFUSION ON DAY 1 OF EACH 21-DAY CYCLE (EVERY
     Route: 042
     Dates: start: 20181106
  3. PREDNISOLONE. [Concomitant]
     Active Substance: PREDNISOLONE
     Indication: RASH
     Route: 048
     Dates: start: 20181121, end: 20181204
  4. DENOSIN [Concomitant]
     Indication: RASH
     Route: 048
     Dates: start: 20181121, end: 20181130
  5. ELOMET [Concomitant]
     Active Substance: MOMETASONE FUROATE
     Indication: RASH
     Route: 061
     Dates: start: 20181120, end: 20181121
  6. BENDA (TAIWAN) [Concomitant]
     Indication: RASH
     Route: 048
     Dates: start: 20181121, end: 20181126
  7. CLOBESOL [Concomitant]
     Active Substance: CLOBETASOL PROPIONATE
     Indication: RASH
     Route: 061
     Dates: start: 20181121, end: 20181207
  8. PEMETREXED. [Suspect]
     Active Substance: PEMETREXED
     Indication: NON-SMALL CELL LUNG CANCER
     Dosage: PEMETREXED 500 MG/M^2 (935 MG) WILL BE ADMINISTERED INTRAVENOUSLY ON DAY 1 OF EACH 21-DAY CYCLE FOR
     Route: 042
     Dates: start: 20181106
  9. MAGNESIUM OXIDE. [Concomitant]
     Active Substance: MAGNESIUM OXIDE
     Route: 048
     Dates: start: 20181119, end: 20181203
  10. CARBOPLATIN. [Suspect]
     Active Substance: CARBOPLATIN
     Indication: NON-SMALL CELL LUNG CANCER
     Dosage: CARBOPLATIN INITIAL TARGET AUC OF 6 MG/ML/MIN WILL BE ADMINISTERED INTRAVENOUSLY ON DAY 1 OF EACH 21
     Route: 042
     Dates: start: 20181106
  11. BAO-GAN [Concomitant]
     Indication: ALANINE AMINOTRANSFERASE INCREASED
     Route: 048
     Dates: start: 20181119

REACTIONS (1)
  - Febrile neutropenia [Recovered/Resolved]

NARRATIVE: CASE EVENT DATE: 20181119
